FAERS Safety Report 17355167 (Version 2)
Quarter: 2020Q1

REPORT INFORMATION
  Report Type: Report from Study
  Country: GB (occurrence: CN)
  Receive Date: 20200131
  Receipt Date: 20200204
  Transmission Date: 20200409
  Serious: Yes (Hospitalization)
  Sender: FDA-Public Use
  Company Number: CN-ASTELLAS-2018US024518

PATIENT
  Age: 57 Year
  Sex: Male
  Weight: 60 kg

DRUGS (2)
  1. ERLOTINIB [Suspect]
     Active Substance: ERLOTINIB
     Indication: NON-SMALL CELL LUNG CANCER
     Route: 048
     Dates: start: 20160913
  2. BEVACIZUMAB. [Suspect]
     Active Substance: BEVACIZUMAB
     Indication: NON-SMALL CELL LUNG CANCER
     Dosage: 960 MG, EVERY 3 WEEKS (LAST DOSE PRIOR TO EVENT: 29/MAR/2018 (15MG/KG BY INTRAVENOUS DRIP INFUSION)
     Route: 041
     Dates: start: 20160913

REACTIONS (1)
  - Bone pain [Not Recovered/Not Resolved]

NARRATIVE: CASE EVENT DATE: 20180510
